FAERS Safety Report 6613027-6 (Version None)
Quarter: 2010Q1

REPORT INFORMATION
  Report Type: 
  Country: None (occurrence: None)
  Receive Date: 20100304
  Receipt Date: 20100222
  Transmission Date: 20100710
  Serious: Yes (Hospitalization, Other)
  Sender: FDA-Public Use
  Company Number: US-BIOGENIDEC-2009BI029198

PATIENT
  Age: 55 Year
  Sex: Female

DRUGS (2)
  1. AVONEX [Suspect]
     Indication: MULTIPLE SCLEROSIS
     Route: 030
     Dates: start: 19971201
  2. XALATAN [Concomitant]
     Indication: PROPHYLAXIS

REACTIONS (3)
  - OPTIC ATROPHY [None]
  - OPTIC NEURITIS [None]
  - RETINAL TEAR [None]
